FAERS Safety Report 10111846 (Version 2)
Quarter: 2014Q2

REPORT INFORMATION
  Report Type: Spontaneous
  Country: US (occurrence: US)
  Receive Date: 20140425
  Receipt Date: 20140605
  Transmission Date: 20141212
  Serious: Yes (Other)
  Sender: FDA-Public Use
  Company Number: US-ASTRAZENECA-2014SE23841

PATIENT
  Age: 62 Year
  Sex: Female
  Weight: 113.4 kg

DRUGS (6)
  1. NEXIUM [Suspect]
     Indication: DIVERTICULUM
     Route: 048
     Dates: start: 2004, end: 20140313
  2. OXYCODONE [Concomitant]
     Indication: PAIN
     Dosage: 30 MG, TAKEN 5 TIMES A DAY
     Route: 048
     Dates: start: 2013
  3. UNKNOWN [Concomitant]
     Indication: MULTIPLE ALLERGIES
     Dosage: UNKNOWN DAILY
     Route: 048
  4. CLONIDINE [Concomitant]
     Indication: BLOOD PRESSURE ABNORMAL
     Dosage: 3 MG FOUR TIMES A DAY, 10 OR 12 YEARS
     Route: 048
  5. NORVASC [Concomitant]
     Indication: BLOOD PRESSURE ABNORMAL
     Route: 048
  6. VENTOLIN [Concomitant]
     Indication: CHRONIC OBSTRUCTIVE PULMONARY DISEASE
     Dosage: UNKNOWN PRN
     Route: 055

REACTIONS (12)
  - Wrist fracture [Unknown]
  - Fall [Unknown]
  - Blood calcium abnormal [Unknown]
  - Sneezing [Unknown]
  - Cough [Unknown]
  - Gastrooesophageal reflux disease [Unknown]
  - Dyspepsia [Unknown]
  - Vitamin D decreased [Unknown]
  - Visual acuity reduced [Unknown]
  - Nausea [Unknown]
  - Off label use [Unknown]
  - Intentional product misuse [Unknown]
